FAERS Safety Report 5814590-5 (Version None)
Quarter: 2008Q3

REPORT INFORMATION
  Report Type: 
  Country: None (occurrence: None)
  Receive Date: 20080718
  Receipt Date: 20071028
  Transmission Date: 20090109
  Serious: No
  Sender: FDA-Public Use
  Company Number: US-KINGPHARMUSA00001-K200701398

PATIENT

DRUGS (2)
  1. LEVOXYL [Suspect]
     Indication: HYPOTHYROIDISM
     Dosage: 25 MCG, QD
     Route: 060
     Dates: start: 20070501
  2. LEVOXYL [Suspect]
     Dosage: 12.5 MCG, QD
     Route: 060

REACTIONS (5)
  - CONDITION AGGRAVATED [None]
  - HYPOTONIA [None]
  - INCORRECT ROUTE OF DRUG ADMINISTRATION [None]
  - MUSCLE TIGHTNESS [None]
  - SEDATION [None]
